FAERS Safety Report 6277822-8 (Version None)
Quarter: 2009Q3

REPORT INFORMATION
  Report Type: 
  Country: None (occurrence: None)
  Receive Date: 20090717
  Receipt Date: 20090717
  Transmission Date: 20100115
  Serious: Yes (Life-Threatening, Other)
  Sender: FDA-Public Use
  Company Number: None

PATIENT
  Age: 21 Year
  Sex: Male
  Weight: 70.3075 kg

DRUGS (8)
  1. PROPECIA [Suspect]
     Indication: ALOPECIA
     Dates: start: 20080401, end: 20080430
  2. PROPECIA [Suspect]
     Indication: ALOPECIA
     Dates: start: 20090101, end: 20090111
  3. CLOMID [Concomitant]
  4. VITAMIN B COMPLEX CAP [Concomitant]
  5. MULTI-VITAMINS [Concomitant]
  6. FISH OIL [Concomitant]
  7. ZINC [Concomitant]
  8. TRAZODONE [Concomitant]

REACTIONS (29)
  - ABDOMINAL DISTENSION [None]
  - ACNE [None]
  - ACTIVITIES OF DAILY LIVING IMPAIRED [None]
  - AMNESIA [None]
  - ANXIETY [None]
  - BLOOD TESTOSTERONE DECREASED [None]
  - BLUNTED AFFECT [None]
  - CONFUSIONAL STATE [None]
  - CONSTIPATION [None]
  - DECREASED APPETITE [None]
  - DEPRESSION [None]
  - DERMATITIS [None]
  - DYSPHONIA [None]
  - ECONOMIC PROBLEM [None]
  - ERECTILE DYSFUNCTION [None]
  - FATIGUE [None]
  - GROIN PAIN [None]
  - HYPERTRICHOSIS [None]
  - INSOMNIA [None]
  - LOSS OF LIBIDO [None]
  - MUSCLE ATROPHY [None]
  - PARTNER STRESS [None]
  - POLLAKIURIA [None]
  - SKIN DISORDER [None]
  - SOCIAL PROBLEM [None]
  - TESTICULAR PAIN [None]
  - TREATMENT NONCOMPLIANCE [None]
  - UNEVALUABLE EVENT [None]
  - VISUAL IMPAIRMENT [None]
